FAERS Safety Report 13698409 (Version 1)
Quarter: 2017Q2

REPORT INFORMATION
  Report Type: Spontaneous
  Country: US (occurrence: US)
  Receive Date: 20170628
  Receipt Date: 20170628
  Transmission Date: 20170830
  Serious: No
  Sender: FDA-Public Use
  Company Number: US-BAYER-2017-124277

PATIENT
  Age: 38 Year
  Sex: Female

DRUGS (2)
  1. LOTRIMIN ULTRA ANTIFUNGAL [Suspect]
     Active Substance: BUTENAFINE HYDROCHLORIDE
     Indication: THERAPEUTIC SKIN CARE TOPICAL
     Dosage: UNK UNK, QD
     Route: 061
     Dates: start: 2017, end: 20170625
  2. PRENATAL VITAMINS [Concomitant]
     Active Substance: VITAMINS
     Dosage: UNK

REACTIONS (2)
  - Exposure during breast feeding [Unknown]
  - Drug administered at inappropriate site [Unknown]
